FAERS Safety Report 9099692 (Version 1)
Quarter: 2013Q1

REPORT INFORMATION
  Report Type: Spontaneous
  Country: FR (occurrence: FR)
  Receive Date: 20130214
  Receipt Date: 20130214
  Transmission Date: 20140127
  Serious: Yes (Hospitalization)
  Sender: FDA-Public Use
  Company Number: FR-PFIZER INC-2013055937

PATIENT
  Age: 56 Year
  Sex: Male

DRUGS (6)
  1. LYRICA [Suspect]
     Indication: BACK PAIN
     Dosage: 25 MG, 2X/DAY
     Route: 048
     Dates: start: 20121130
  2. LYRICA [Suspect]
     Dosage: 50 MG, 2X/DAY
     Route: 048
     Dates: start: 20121203
  3. LYRICA [Suspect]
     Dosage: 75 MG, 2X/DAY
     Route: 048
     Dates: start: 20121217
  4. OXYNORM [Concomitant]
  5. OXYCONTIN [Concomitant]
  6. PREVISCAN [Concomitant]

REACTIONS (1)
  - Neutropenia [Recovered/Resolved]
